FAERS Safety Report 21613774 (Version 1)
Quarter: 2022Q4

REPORT INFORMATION
  Report Type: Spontaneous
  Country: BE (occurrence: BE)
  Receive Date: 20221118
  Receipt Date: 20221118
  Transmission Date: 20230113
  Serious: Yes (Hospitalization, Other)
  Sender: FDA-Public Use
  Company Number: BE-FAMHP-DHH-N2022-119184

PATIENT
  Age: 31 Year
  Sex: Female
  Weight: 60 kg

DRUGS (11)
  1. DOCETAXEL [Suspect]
     Active Substance: DOCETAXEL
     Indication: Breast cancer
     Dosage: UNK
     Route: 065
     Dates: end: 20220505
  2. Decapeptyl [Concomitant]
     Indication: Product used for unknown indication
     Dosage: 1 DOSAGE FORM,(1X/ 4 WEKEN IM, LAST RECEIVED ON 25/04/2022)
     Route: 030
  3. DEXAMETHASONE [Concomitant]
     Active Substance: DEXAMETHASONE
     Indication: Product used for unknown indication
     Dosage: UNK,(1 TABLET 12U EN 6 U VOOR CHEMO EN 1 TABLET 12U, 24U EN 36U NA CHEMO)
     Route: 048
  4. IBUPROFEN [Concomitant]
     Active Substance: IBUPROFEN
     Indication: Product used for unknown indication
     Dosage: 3 DOSAGE FORM, ONCE A DAY,(DAILY 3X/DAY (07H - 15H - 23H))
     Route: 048
  5. IBUPROFEN [Concomitant]
     Active Substance: IBUPROFEN
     Indication: Pain
     Dosage: UNK,(EVERY 8H IN CASE OF PAIN UNADEQUATELY CONTROLLED WITH PARACETAMOL)
     Route: 048
  6. IMODIUM [Concomitant]
     Active Substance: LOPERAMIDE HYDROCHLORIDE
     Indication: Diarrhoea
     Dosage: UNK,(IN CASE OF DIARRHEA TILL 8 CO / DAY)
     Route: 048
  7. ALIZAPRIDE HYDROCHLORIDE [Concomitant]
     Active Substance: ALIZAPRIDE HYDROCHLORIDE
     Indication: Nausea
     Dosage: UNK,(UNTIL 6 CO / DAY IN CASE OF NAUSEA)
     Route: 048
  8. MOVICOL [Concomitant]
     Active Substance: POLYETHYLENE GLYCOL 3350\POTASSIUM CHLORIDE\SODIUM BICARBONATE\SODIUM CHLORIDE
     Indication: Constipation
     Dosage: UNK, TWO TIMES A DAY,(2 X / DAY 1 SACHET, IN CASE OF CONSTIPATION)
     Route: 048
  9. ACETAMINOPHEN [Concomitant]
     Active Substance: ACETAMINOPHEN
     Indication: Pain
     Dosage: UNK, FOUR TIMES/DAY,((DAILY EVERY 6H IN CASE OF PAIN))
     Route: 048
  10. XANAX [Concomitant]
     Active Substance: ALPRAZOLAM
     Indication: Insomnia
     Dosage: UNK, FOUR TIMES/DAY,(DAILY EVERY 6H IN CASE OF UNREST OR SLEEPLESSNESS)
     Route: 048
  11. ZOLPIDEM [Concomitant]
     Active Substance: ZOLPIDEM TARTRATE
     Indication: Product used for unknown indication
     Dosage: 1 DOSAGE FORM, ONCE A DAY,(EVENING)
     Route: 048

REACTIONS (5)
  - Syncope [Recovered/Resolved]
  - Chest discomfort [Recovered/Resolved]
  - Dyspnoea [Recovered/Resolved]
  - Hypersensitivity [Recovered/Resolved]
  - Throat irritation [Recovered/Resolved]

NARRATIVE: CASE EVENT DATE: 20220505
